FAERS Safety Report 14112043 (Version 2)
Quarter: 2017Q4

REPORT INFORMATION
  Report Type: Spontaneous
  Country: DE (occurrence: DE)
  Receive Date: 20171020
  Receipt Date: 20171214
  Transmission Date: 20180321
  Serious: Yes (Other)
  Sender: FDA-Public Use
  Company Number: DE-B.I. PHARMACEUTICALS,INC./RIDGEFIELD-2017-BI-056230

PATIENT
  Sex: Male

DRUGS (7)
  1. GILOTRIF [Suspect]
     Active Substance: AFATINIB
     Route: 065
     Dates: start: 20171012
  2. GILOTRIF [Suspect]
     Active Substance: AFATINIB
     Indication: LUNG NEOPLASM MALIGNANT
     Route: 065
     Dates: end: 20170920
  3. GILOTRIF [Suspect]
     Active Substance: AFATINIB
     Route: 065
     Dates: start: 20170724
  4. GILOTRIF [Suspect]
     Active Substance: AFATINIB
     Indication: METASTASES TO BONE
     Dosage: DOSE: 30/40MG DAILY
     Route: 065
  5. GILOTRIF [Suspect]
     Active Substance: AFATINIB
     Route: 065
     Dates: start: 20170614
  6. NEXIUM [Concomitant]
     Active Substance: ESOMEPRAZOLE MAGNESIUM
     Indication: PRODUCT USED FOR UNKNOWN INDICATION
     Route: 065
     Dates: start: 20170725
  7. GILOTRIF [Suspect]
     Active Substance: AFATINIB
     Route: 065
     Dates: start: 20170710

REACTIONS (4)
  - Onychoclasis [Unknown]
  - Hair texture abnormal [Unknown]
  - Malignant neoplasm of choroid [Unknown]
  - Product quality issue [Unknown]

NARRATIVE: CASE EVENT DATE: 20170918
